FAERS Safety Report 14967307 (Version 1)
Quarter: 2018Q2

REPORT INFORMATION
  Report Type: Spontaneous
  Country: CN (occurrence: CN)
  Receive Date: 20180604
  Receipt Date: 20180604
  Transmission Date: 20180711
  Serious: Yes (Death, Other)
  Sender: FDA-Public Use
  Company Number: CN-CHEPLA-C20180266_01

PATIENT

DRUGS (8)
  1. ATRA [Suspect]
     Active Substance: TRETINOIN
  2. DAUNORUBICIN [Suspect]
     Active Substance: DAUNORUBICIN
  3. 6-MERCAPTOPURINE [Suspect]
     Active Substance: MERCAPTOPURINE
  4. MITOXANTRONE [Suspect]
     Active Substance: MITOXANTRONE HYDROCHLORIDE
  5. METHOTREXATE. [Suspect]
     Active Substance: METHOTREXATE
  6. DEXAMETHASONE. [Concomitant]
     Active Substance: DEXAMETHASONE
  7. ATO (ARSENIC TRIOXIDE) [Suspect]
     Active Substance: ARSENIC TRIOXIDE
  8. CYTARABINE. [Suspect]
     Active Substance: CYTARABINE

REACTIONS (10)
  - Sepsis [Unknown]
  - Cardiac disorder [Unknown]
  - Mucosal infection [Unknown]
  - Leukaemia recurrent [Fatal]
  - Gastrointestinal disorder [Unknown]
  - Respiratory tract infection [Unknown]
  - Acute promyelocytic leukaemia differentiation syndrome [Unknown]
  - Death [Fatal]
  - Skin infection [Unknown]
  - Liver injury [Unknown]
